FAERS Safety Report 6225915-3 (Version None)
Quarter: 2009Q2

REPORT INFORMATION
  Report Type: 
  Country: None (occurrence: None)
  Receive Date: 20090612
  Receipt Date: 20090504
  Transmission Date: 20091009
  Serious: No
  Sender: FDA-Public Use
  Company Number: US-ABBOTT-09P-163-0571588-00

PATIENT
  Sex: Female
  Weight: 63.56 kg

DRUGS (3)
  1. HUMIRA [Suspect]
     Indication: CROHN'S DISEASE
     Dates: start: 20081204
  2. BENADRYL [Concomitant]
     Indication: PROPHYLAXIS
  3. BENADRYL [Concomitant]
     Indication: INJECTION SITE URTICARIA

REACTIONS (5)
  - ARTHRALGIA [None]
  - DRUG DOSE OMISSION [None]
  - INJECTION SITE IRRITATION [None]
  - INJECTION SITE URTICARIA [None]
  - MUCOUS STOOLS [None]
